FAERS Safety Report 7659473-3 (Version None)
Quarter: 2011Q3

REPORT INFORMATION
  Report Type: 
  Country: None (occurrence: None)
  Receive Date: 20110805
  Receipt Date: 20110718
  Transmission Date: 20111222
  Serious: Yes (Other)
  Sender: FDA-Public Use
  Company Number: US-PFIZER INC-US-WYE-H03263808

PATIENT
  Sex: Female

DRUGS (5)
  1. CYCRIN [Suspect]
  2. EVISTA [Suspect]
     Dosage: UNK
  3. PROVERA [Suspect]
  4. PREMPRO [Suspect]
     Dosage: UNK
  5. PREMARIN [Suspect]
     Dosage: UNK

REACTIONS (1)
  - BREAST CANCER [None]
